FAERS Safety Report 14982061 (Version 1)
Quarter: 2018Q2

REPORT INFORMATION
  Report Type: Spontaneous
  Country: US (occurrence: US)
  Receive Date: 20180607
  Receipt Date: 20180607
  Transmission Date: 20180711
  Serious: No
  Sender: FDA-Public Use
  Company Number: US-ASTRAZENECA-2018SE64668

PATIENT
  Age: 73 Year
  Sex: Female

DRUGS (1)
  1. PRILOSEC OTC [Suspect]
     Active Substance: OMEPRAZOLE MAGNESIUM
     Indication: FLATULENCE
     Dosage: SWALLOWED A PIECE OF FOIL WITH TABLET, 1 ONLY
     Route: 048
     Dates: start: 20180508, end: 20180508

REACTIONS (8)
  - Exposure via ingestion [Unknown]
  - Incorrect drug administration duration [Unknown]
  - Off label use [Unknown]
  - Drug effective for unapproved indication [Unknown]
  - Inappropriate schedule of drug administration [Unknown]
  - Product blister packaging issue [Unknown]
  - Expired product administered [Unknown]
  - Foreign body in gastrointestinal tract [Recovered/Resolved]

NARRATIVE: CASE EVENT DATE: 20180508
